FAERS Safety Report 10163814 (Version 2)
Quarter: 2014Q2

REPORT INFORMATION
  Report Type: Report from Study
  Country: DE (occurrence: NL)
  Receive Date: 20140509
  Receipt Date: 20140528
  Transmission Date: 20141212
  Serious: Yes (Death)
  Sender: FDA-Public Use
  Company Number: DE-ACTELION-A-US2009-98257

PATIENT
  Age: 73 Year
  Sex: Female

DRUGS (1)
  1. VENTAVIS [Suspect]
     Indication: PULMONARY ARTERIAL HYPERTENSION
     Dosage: UNK
     Route: 055
     Dates: start: 20090324, end: 20100429

REACTIONS (8)
  - Pulmonary arterial hypertension [Fatal]
  - Back pain [Unknown]
  - Malaise [Unknown]
  - Hospitalisation [Unknown]
  - Cough [Unknown]
  - Wrong technique in drug usage process [Unknown]
  - Musculoskeletal discomfort [Unknown]
  - Nasopharyngitis [Unknown]
